FAERS Safety Report 8461997-6 (Version None)
Quarter: 2012Q2

REPORT INFORMATION
  Report Type: 
  Country: None (occurrence: None)
  Receive Date: 20120625
  Receipt Date: 20120615
  Transmission Date: 20120825
  Serious: Yes (Life-Threatening, Other)
  Sender: FDA-Public Use
  Company Number: US-JNJFOC-20120609051

PATIENT
  Sex: Female
  Weight: 125.19 kg

DRUGS (1)
  1. REMICADE [Suspect]
     Indication: PSORIATIC ARTHROPATHY
     Route: 042
     Dates: start: 20120101

REACTIONS (3)
  - PAIN IN EXTREMITY [None]
  - BURNS SECOND DEGREE [None]
  - BLOOD BLISTER [None]
